FAERS Safety Report 17769559 (Version 1)
Quarter: 2020Q2

REPORT INFORMATION
  Report Type: Spontaneous
  Country: US (occurrence: US)
  Receive Date: 20200512
  Receipt Date: 20200512
  Transmission Date: 20200714
  Serious: Yes (Hospitalization)
  Sender: FDA-Public Use
  Company Number: US-HIKMA PHARMACEUTICALS USA INC.-US-H14001-20-02220

PATIENT
  Age: 16 Year
  Sex: Female

DRUGS (7)
  1. CYTARABINE. [Suspect]
     Active Substance: CYTARABINE
     Indication: PRECURSOR B-LYMPHOBLASTIC LYMPHOMA
     Route: 042
     Dates: start: 20200127
  2. VINCRISTINE [Suspect]
     Active Substance: VINCRISTINE
     Indication: PRECURSOR B-LYMPHOBLASTIC LYMPHOMA
     Route: 042
     Dates: start: 20191212
  3. CYCLOPHOSPHAMIDE. [Suspect]
     Active Substance: CYCLOPHOSPHAMIDE
     Indication: PRECURSOR B-LYMPHOBLASTIC LYMPHOMA
     Route: 042
     Dates: start: 20200127
  4. THIOGUANINE [Suspect]
     Active Substance: THIOGUANINE
     Indication: PRECURSOR B-LYMPHOBLASTIC LYMPHOMA
     Route: 048
     Dates: start: 20200127
  5. INCB018424 [Suspect]
     Active Substance: RUXOLITINIB
     Indication: PRECURSOR B-LYMPHOBLASTIC LYMPHOMA
     Route: 048
     Dates: start: 20190709, end: 20200313
  6. METHOTREXATE. [Suspect]
     Active Substance: METHOTREXATE
     Indication: PRECURSOR B-LYMPHOBLASTIC LYMPHOMA
     Route: 037
     Dates: start: 20191212
  7. PEGASPARGASE [Suspect]
     Active Substance: PEGASPARGASE
     Indication: PRECURSOR B-LYMPHOBLASTIC LYMPHOMA
     Route: 042
     Dates: start: 20191217

REACTIONS (4)
  - Cryptococcal fungaemia [Recovered/Resolved]
  - Pyrexia [Unknown]
  - Hypotension [Recovered/Resolved]
  - Subclavian vein thrombosis [Not Recovered/Not Resolved]

NARRATIVE: CASE EVENT DATE: 20200229
